FAERS Safety Report 23281241 (Version 1)
Quarter: 2023Q4

REPORT INFORMATION
  Report Type: Report from Study
  Country: US (occurrence: US)
  Receive Date: 20231211
  Receipt Date: 20231211
  Transmission Date: 20240109
  Serious: Yes (Other)
  Sender: FDA-Public Use
  Company Number: US-EXELIXIS-CABO-23071230

PATIENT
  Sex: Male
  Weight: 117 kg

DRUGS (2)
  1. CABOMETYX [Suspect]
     Active Substance: CABOZANTINIB S-MALATE
     Indication: Renal cancer
     Dosage: 40 MG, QD (ON DAYS 1-28 EVERY 28 DAYS)
     Route: 048
  2. CABOMETYX [Suspect]
     Active Substance: CABOZANTINIB S-MALATE
     Dosage: 20 MG, QD 9ONCE DAILY ON DAYS 1-28 EVERY 28 DAYS)
     Route: 048

REACTIONS (1)
  - Drug-induced liver injury [Unknown]
